FAERS Safety Report 9447264 (Version 1)
Quarter: 2013Q3

REPORT INFORMATION
  Report Type: Spontaneous
  Country: DE (occurrence: DE)
  Receive Date: 20130808
  Receipt Date: 20130808
  Transmission Date: 20140515
  Serious: Yes (Other)
  Sender: FDA-Public Use
  Company Number: DE-AMGEN-DEUSP2013048556

PATIENT
  Age: 43 Year
  Sex: Female
  Weight: 125 kg

DRUGS (1)
  1. ENBREL [Suspect]
     Indication: RHEUMATOID ARTHRITIS
     Dosage: 25 MG, WEEKLY
     Route: 030
     Dates: start: 201108

REACTIONS (2)
  - Metrorrhagia [Recovered/Resolved]
  - Endometrial hypoplasia [Unknown]
